FAERS Safety Report 18973223 (Version 1)
Quarter: 2021Q1

REPORT INFORMATION
  Report Type: Other
  Country: US (occurrence: US)
  Receive Date: 20210305
  Receipt Date: 20210305
  Transmission Date: 20210420
  Serious: Yes (Death, Hospitalization)
  Sender: FDA-Public Use
  Company Number: US-ROCHE-2767956

PATIENT
  Sex: Female

DRUGS (18)
  1. ALLEGRA [Concomitant]
     Active Substance: FEXOFENADINE HYDROCHLORIDE
  2. POTASSIUM CHLORIDE. [Concomitant]
     Active Substance: POTASSIUM CHLORIDE
  3. BYDUREON [Concomitant]
     Active Substance: EXENATIDE
  4. OCREVUS [Suspect]
     Active Substance: OCRELIZUMAB
     Route: 042
     Dates: start: 20181010
  5. OCREVUS [Suspect]
     Active Substance: OCRELIZUMAB
     Route: 042
  6. LASIX [Concomitant]
     Active Substance: FUROSEMIDE
  7. GABAPENTIN. [Concomitant]
     Active Substance: GABAPENTIN
  8. VOLTAREN [Concomitant]
     Active Substance: DICLOFENAC SODIUM
  9. DELZICOL [Concomitant]
     Active Substance: MESALAMINE
  10. OCREVUS [Suspect]
     Active Substance: OCRELIZUMAB
     Indication: PRIMARY PROGRESSIVE MULTIPLE SCLEROSIS
     Dosage: IV 2 WEEKS APART
     Route: 042
     Dates: start: 20170814, end: 20200826
  11. SINEQUAN [Concomitant]
     Active Substance: DOXEPIN HYDROCHLORIDE
  12. DURAGESIC [Concomitant]
     Active Substance: FENTANYL
  13. EFFEXOR XR [Concomitant]
     Active Substance: VENLAFAXINE HYDROCHLORIDE
  14. ISOPTO ATROPINE [Concomitant]
     Active Substance: ATROPINE SULFATE
  15. TYLOL [Concomitant]
  16. CLINDAMYCIN. [Concomitant]
     Active Substance: CLINDAMYCIN
  17. ABILIFY [Concomitant]
     Active Substance: ARIPIPRAZOLE
  18. SINGULAIR [Concomitant]
     Active Substance: MONTELUKAST SODIUM

REACTIONS (4)
  - Death [Fatal]
  - Pancreatitis [Unknown]
  - Abdominal abscess [Unknown]
  - Pyoderma gangrenosum [Unknown]
